FAERS Safety Report 5611321-9 (Version None)
Quarter: 2008Q1

REPORT INFORMATION
  Report Type: 
  Country: None (occurrence: None)
  Receive Date: 20080201
  Receipt Date: 20080123
  Transmission Date: 20080703
  Serious: Yes (Other)
  Sender: FDA-Public Use
  Company Number: US-PFIZER INC-2007082261

PATIENT
  Sex: Female
  Weight: 79.4 kg

DRUGS (7)
  1. NORVASC [Suspect]
  2. LYRICA [Suspect]
     Indication: PAIN IN EXTREMITY
     Dates: start: 20070719, end: 20070723
  3. LYRICA [Suspect]
     Indication: BACK PAIN
  4. AMOXICILLIN [Concomitant]
  5. MELOXICAM [Concomitant]
  6. ATENOLOL [Concomitant]
  7. ASPIRIN [Concomitant]

REACTIONS (2)
  - PRURITUS [None]
  - SKIN ULCER [None]
